FAERS Safety Report 9106279 (Version 1)
Quarter: 2013Q1

REPORT INFORMATION
  Report Type: Spontaneous
  Country: US (occurrence: US)
  Receive Date: 20130220
  Receipt Date: 20130220
  Transmission Date: 20140127
  Serious: No
  Sender: FDA-Public Use
  Company Number: US-ASTRAZENECA-2013SE03370

PATIENT
  Age: 64 Year
  Sex: Male
  Weight: 81.6 kg

DRUGS (4)
  1. NEXIUM [Suspect]
     Indication: ABDOMINAL DISCOMFORT
     Route: 048
     Dates: start: 201204
  2. OMEPRAZOLE [Suspect]
     Indication: ABDOMINAL DISCOMFORT
     Route: 048
     Dates: start: 2012
  3. PROBIOTIC [Suspect]
     Route: 065
  4. ASPIRIN [Concomitant]

REACTIONS (2)
  - Abdominal pain upper [Not Recovered/Not Resolved]
  - Intentional drug misuse [Not Recovered/Not Resolved]
